FAERS Safety Report 8327719-4 (Version None)
Quarter: 2012Q2

REPORT INFORMATION
  Report Type: 
  Country: None (occurrence: None)
  Receive Date: 20120502
  Receipt Date: 20120426
  Transmission Date: 20120825
  Serious: No
  Sender: FDA-Public Use
  Company Number: US-PFIZER INC-2012104701

PATIENT
  Sex: Male
  Weight: 99.773 kg

DRUGS (4)
  1. LYRICA [Suspect]
     Indication: NERVE COMPRESSION
  2. LYRICA [Suspect]
     Indication: HYPOAESTHESIA
  3. LYRICA [Suspect]
     Indication: SPONDYLITIS
     Dosage: 70 MG, 3X/DAY
     Dates: start: 20110101
  4. PRILOSEC [Concomitant]
     Indication: GASTROOESOPHAGEAL REFLUX DISEASE
     Dosage: 20 MG, DAILY

REACTIONS (4)
  - ARTHRALGIA [None]
  - SOMNOLENCE [None]
  - WEIGHT INCREASED [None]
  - FATIGUE [None]
